FAERS Safety Report 5232652-0 (Version None)
Quarter: 2007Q1

REPORT INFORMATION
  Report Type: 
  Country: None (occurrence: None)
  Receive Date: 20070206
  Receipt Date: 20070206
  Transmission Date: 20070707
  Serious: Yes (Hospitalization)
  Sender: FDA-Public Use
  Company Number: None

PATIENT
  Age: 59 Year
  Sex: Male
  Weight: 48.5349 kg

DRUGS (14)
  1. MORPHINE [Suspect]
     Indication: PAIN
     Dosage: 60 MG EVERY 12 HOURS PO
     Route: 048
     Dates: start: 20060830, end: 20061004
  2. OXYCODONE/ACETAMINOPHEN [Suspect]
     Indication: PAIN
     Dosage: 5 MG / 325 MG EVERY 4 HR PRN PO
     Route: 048
     Dates: start: 19920429, end: 20061126
  3. FERROUS SULFATE TAB [Concomitant]
  4. METHOCARBAMOL [Concomitant]
  5. POLYETHYLENE GLYCOL [Concomitant]
  6. CAPSAICIN [Concomitant]
  7. CALCIUM CARBONATE [Concomitant]
  8. FLUNISOLIDE [Concomitant]
  9. PANCRELIPASE [Concomitant]
  10. ALENDRONATE SODIUM [Concomitant]
  11. ERGOCALCIFEROL [Concomitant]
  12. CARBAMAZEPINE [Concomitant]
  13. OMEPRAZOLE [Concomitant]
  14. PROCHLORPERAZINE [Concomitant]

REACTIONS (8)
  - ABDOMINAL DISTENSION [None]
  - ABDOMINAL PAIN UPPER [None]
  - ABDOMINAL RIGIDITY [None]
  - DRUG INEFFECTIVE [None]
  - FLATULENCE [None]
  - ILEUS PARALYTIC [None]
  - INTESTINAL OBSTRUCTION [None]
  - ORAL INTAKE REDUCED [None]
